FAERS Safety Report 17718879 (Version 1)
Quarter: 2020Q2

REPORT INFORMATION
  Report Type: Spontaneous
  Country: US (occurrence: US)
  Receive Date: 20200428
  Receipt Date: 20200428
  Transmission Date: 20200714
  Serious: Yes (Life-Threatening)
  Sender: FDA-Public Use
  Company Number: None

PATIENT
  Age: 74 Year
  Sex: Male

DRUGS (1)
  1. ENOXAPARIN (ENOXAPARIN 80MG/0.8ML INJ) [Suspect]
     Active Substance: ENOXAPARIN
     Indication: DEEP VEIN THROMBOSIS
     Route: 058
     Dates: start: 20200302, end: 20200303

REACTIONS (3)
  - Infusion site extravasation [None]
  - Haemorrhagic disorder [None]
  - Abdominal wall haematoma [None]

NARRATIVE: CASE EVENT DATE: 20200303
